FAERS Safety Report 15267328 (Version 1)
Quarter: 2018Q3

REPORT INFORMATION
  Report Type: Spontaneous
  Country: US (occurrence: US)
  Receive Date: 20180724
  Receipt Date: 20180724
  Transmission Date: 20181010
  Serious: Yes (Disabling, Other)
  Sender: FDA-Public Use
  Company Number: None

PATIENT
  Age: 70 Year
  Sex: Female
  Weight: 72.9 kg

DRUGS (10)
  1. VALSARTAN. [Suspect]
     Active Substance: VALSARTAN
     Indication: HYPERTENSION
     Dosage: ?          QUANTITY:90 TABLET(S);?
     Route: 048
     Dates: start: 20170725, end: 20170803
  2. SIMVASTATIN. [Concomitant]
     Active Substance: SIMVASTATIN
  3. BABY ASA [Concomitant]
     Active Substance: ASPIRIN
  4. COLACE [Concomitant]
     Active Substance: DOCUSATE SODIUM
  5. HCTZ [Concomitant]
     Active Substance: HYDROCHLOROTHIAZIDE
  6. XANEX [Concomitant]
  7. CALCIUM [Concomitant]
     Active Substance: CALCIUM
  8. METOPROLOL ER [Concomitant]
     Active Substance: METOPROLOL SUCCINATE
  9. VITAMIN C [Concomitant]
     Active Substance: ASCORBIC ACID
  10. VALSARTAN 160 MG [Suspect]
     Active Substance: VALSARTAN
     Indication: HYPERTENSION
     Dosage: ?          QUANTITY:90 TABLET(S);?
     Route: 048
     Dates: start: 20161229, end: 20170803

REACTIONS (5)
  - Dyspnoea [None]
  - Therapy cessation [None]
  - Gait disturbance [None]
  - Chest discomfort [None]
  - Therapy change [None]

NARRATIVE: CASE EVENT DATE: 20161229
